FAERS Safety Report 7661159-6 (Version None)
Quarter: 2011Q3

REPORT INFORMATION
  Report Type: 
  Country: None (occurrence: None)
  Receive Date: 20110805
  Receipt Date: 20101110
  Transmission Date: 20111222
  Serious: No
  Sender: FDA-Public Use
  Company Number: US-ABBOTT-10P-163-0685042-00

PATIENT
  Sex: Male
  Weight: 81.72 kg

DRUGS (6)
  1. ASPIRIN [Concomitant]
     Indication: PROPHYLAXIS
  2. NIASPAN [Suspect]
     Indication: DYSLIPIDAEMIA
     Route: 048
     Dates: start: 20100201
  3. NIASPAN [Suspect]
     Indication: HIGH DENSITY LIPOPROTEIN DECREASED
  4. UROXATROL [Concomitant]
     Indication: PROSTATOMEGALY
     Route: 048
  5. ASPIRIN [Concomitant]
     Indication: FLUSHING
     Route: 048
  6. PREVACID [Concomitant]
     Indication: GASTROOESOPHAGEAL REFLUX DISEASE
     Route: 048

REACTIONS (4)
  - RETINAL DISORDER [None]
  - RESTLESSNESS [None]
  - CAROTID ARTERY OCCLUSION [None]
  - FLUSHING [None]
